FAERS Safety Report 7598785-9 (Version None)
Quarter: 2011Q3

REPORT INFORMATION
  Report Type: 
  Country: None (occurrence: None)
  Receive Date: 20110711
  Receipt Date: 20110701
  Transmission Date: 20111222
  Serious: No
  Sender: FDA-Public Use
  Company Number: US-BIOGENIDEC-2011BI016942

PATIENT
  Age: 38 Year
  Sex: Male

DRUGS (2)
  1. TYSABRI [Suspect]
     Indication: MULTIPLE SCLEROSIS
     Route: 042
     Dates: start: 20090806
  2. TYSABRI [Suspect]
     Route: 042
     Dates: start: 20070426, end: 20090115

REACTIONS (3)
  - BRONCHITIS [None]
  - RESPIRATORY DISORDER [None]
  - JOINT INJURY [None]
